FAERS Safety Report 14738824 (Version 1)
Quarter: 2018Q2

REPORT INFORMATION
  Report Type: Spontaneous
  Country: CA (occurrence: CA)
  Receive Date: 20180409
  Receipt Date: 20180409
  Transmission Date: 20180711
  Serious: Yes (Other)
  Sender: FDA-Public Use
  Company Number: CA-TEVA-2018-CA-878298

PATIENT
  Age: 88 Year
  Sex: Male

DRUGS (1)
  1. TEVA-FUROSEMIDE [Suspect]
     Active Substance: FUROSEMIDE
     Indication: DIURETIC THERAPY
     Route: 048

REACTIONS (2)
  - Chromatopsia [Recovering/Resolving]
  - Visual impairment [Recovering/Resolving]
